FAERS Safety Report 6817363-X (Version None)
Quarter: 2010Q3

REPORT INFORMATION
  Report Type: 
  Country: None (occurrence: None)
  Receive Date: 20100706
  Receipt Date: 20100624
  Transmission Date: 20110219
  Serious: Yes (Other)
  Sender: FDA-Public Use
  Company Number: US-BAYER-201017894NA

PATIENT
  Age: 43 Year
  Sex: Female
  Weight: 67 kg

DRUGS (8)
  1. YAZ [Suspect]
     Indication: PRODUCT USED FOR UNKNOWN INDICATION
     Dates: start: 20060101, end: 20090101
  2. YASMIN [Suspect]
     Indication: PRODUCT USED FOR UNKNOWN INDICATION
     Route: 048
     Dates: start: 20060101, end: 20090101
  3. AVELOX [Concomitant]
     Dates: start: 20060530
  4. METHOCARBAMOL [Concomitant]
     Dates: start: 20060920
  5. IBUPROFEN [Concomitant]
     Dates: start: 20060920
  6. ZITHROMYCIN [Concomitant]
     Dates: start: 20061227
  7. CEPHALEXIN [Concomitant]
     Dates: start: 20070708
  8. VICODIN [Concomitant]

REACTIONS (2)
  - ABDOMINAL PAIN [None]
  - CHOLECYSTITIS [None]
